FAERS Safety Report 18553436 (Version 1)
Quarter: 2020Q4

REPORT INFORMATION
  Report Type: Spontaneous
  Country: DK (occurrence: DK)
  Receive Date: 20201127
  Receipt Date: 20201127
  Transmission Date: 20210114
  Serious: Yes (Hospitalization)
  Sender: FDA-Public Use
  Company Number: DK-PFIZER INC-2020467137

PATIENT
  Age: 65 Year
  Sex: Female
  Weight: 52 kg

DRUGS (2)
  1. ZOLEDRONIC ACID [Suspect]
     Active Substance: ZOLEDRONIC ACID
     Indication: BREAST CANCER
     Dosage: UNK (PATIENT RECEIVED 6 SERIES OF TREATMENT)
     Route: 042
     Dates: start: 20180102, end: 20200116
  2. ALENDRONAT AUROBINDO [Suspect]
     Active Substance: ALENDRONATE SODIUM
     Indication: OSTEOPOROSIS
     Dosage: 70 MG, WEEKLY
     Route: 048
     Dates: start: 20141021, end: 20200602

REACTIONS (4)
  - Off label use [Unknown]
  - Osteonecrosis of jaw [Not Recovered/Not Resolved]
  - Loose tooth [Unknown]
  - Pain in jaw [Unknown]

NARRATIVE: CASE EVENT DATE: 2020
